FAERS Safety Report 4355878-7 (Version None)
Quarter: 2004Q2

REPORT INFORMATION
  Report Type: 
  Country: None (occurrence: None)
  Receive Date: 20040507
  Receipt Date: 20040507
  Transmission Date: 20050107
  Serious: Yes (Other)
  Sender: FDA-Public Use
  Company Number: None

PATIENT
  Age: 28 Year
  Sex: Female
  Weight: 61.2356 kg

DRUGS (1)
  1. EFFEXOR XR [Suspect]
     Indication: POSTPARTUM DEPRESSION
     Dosage: 37.5 MG DAILY ORAL
     Route: 048
     Dates: start: 20040401, end: 20040506

REACTIONS (2)
  - DRUG DEPENDENCE [None]
  - STRESS SYMPTOMS [None]
